FAERS Safety Report 4743660-8 (Version None)
Quarter: 2005Q3

REPORT INFORMATION
  Report Type: 
  Country: None (occurrence: None)
  Receive Date: 20050809
  Receipt Date: 20050729
  Transmission Date: 20060218
  Serious: Yes (Hospitalization)
  Sender: FDA-Public Use
  Company Number: HQWYE596529JUL05

PATIENT
  Age: 83 Year
  Sex: Female

DRUGS (10)
  1. PANTOZOL (PANTOPRAZOLE, TABLET, DELAYED RELEASE) [Suspect]
     Dosage: 20 MG 1X PER 1 DAY ORAL
     Route: 048
     Dates: end: 20050518
  2. ADRIABLASTIN (DOXORUBICIN HYDROCHLORIDE, ) [Suspect]
     Indication: B-CELL LYMPHOMA
     Dosage: 6 TIMES, 60 MG INTRAVENOUS
     Route: 042
     Dates: start: 20041112, end: 20050308
  3. CIPROFLOXACIN [Suspect]
     Indication: URINARY TRACT INFECTION
     Dosage: ORAL
     Route: 048
     Dates: start: 20050508, end: 20050813
  4. CYCLOPHOSPHAMIDE [Suspect]
     Indication: B-CELL LYMPHOMA
     Dosage: 6 TIMES, 900 MG INTRAVENOUS
     Route: 042
     Dates: start: 20040112, end: 20050308
  5. MABTHERA (RITUXIMAB,) [Suspect]
     Indication: B-CELL LYMPHOMA
     Dosage: 6 TIMES, 525 MG INTRAVENOUS
     Route: 042
     Dates: start: 20041112, end: 20050308
  6. NEO-MERCAZOLE TAB [Suspect]
     Indication: GOITRE
     Dosage: 5 MG 1X PER 1 DAY ORAL
     Route: 048
     Dates: end: 20050527
  7. ONCOVIN [Suspect]
     Indication: B-CELL LYMPHOMA
     Dosage: 6 TIMES, 1.8 MG INTRAVENOUS
     Route: 042
     Dates: start: 20041112, end: 20050308
  8. CALPEROS (CALCIUM CARBONATE) [Concomitant]
  9. TOREM (TORASEMIDE) [Concomitant]
  10. BELOC (METOPROLOL TARTRATE) [Concomitant]

REACTIONS (4)
  - CONDITION AGGRAVATED [None]
  - HEPATITIS CHRONIC ACTIVE [None]
  - HEPATITIS TOXIC [None]
  - JAUNDICE HEPATOCELLULAR [None]
